FAERS Safety Report 9562304 (Version 3)
Quarter: 2013Q4

REPORT INFORMATION
  Report Type: Report from Study
  Country: ES (occurrence: ES)
  Receive Date: 20130927
  Receipt Date: 20131010
  Transmission Date: 20140711
  Serious: Yes (Disabling)
  Sender: FDA-Public Use
  Company Number: ES-ABBVIE-11P-144-0716758-00

PATIENT
  Age: 45 Year
  Sex: Female
  Weight: 60 kg

DRUGS (5)
  1. HUMIRA [Suspect]
     Indication: CROHN^S DISEASE
     Dosage: 160MG (BASELINE)
     Route: 058
     Dates: start: 20090923, end: 20090923
  2. HUMIRA [Suspect]
     Dosage: 80 MG (WEEK 2)
     Route: 058
  3. HUMIRA [Suspect]
     Route: 058
     Dates: end: 20100624
  4. VITAMIN B12 [Concomitant]
     Indication: PRODUCT USED FOR UNKNOWN INDICATION
  5. VITAMIN D [Concomitant]
     Indication: PRODUCT USED FOR UNKNOWN INDICATION

REACTIONS (1)
  - Retinopathy [Not Recovered/Not Resolved]
